FAERS Safety Report 8962840 (Version 2)
Quarter: 2012Q4

REPORT INFORMATION
  Report Type: 
  Country: US (occurrence: US)
  Receive Date: 20121213
  Receipt Date: 20121217
  Transmission Date: 20130627
  Serious: Yes (Hospitalization, Other)
  Sender: FDA-Public Use
  Company Number: US-PFIZER INC-2005151170

PATIENT
  Age: 51 Year
  Sex: Female

DRUGS (15)
  1. FELDENE [Suspect]
     Indication: PAIN
     Dosage: UNK
     Dates: start: 200509, end: 20050917
  2. MOTRIN [Interacting]
     Indication: PAIN
     Dosage: UNK
     Route: 065
     Dates: start: 200509, end: 20050917
  3. SPIRONOLACTONE [Concomitant]
     Route: 065
  4. PRINIVIL [Concomitant]
     Route: 065
  5. PRILOSEC [Concomitant]
     Route: 065
  6. SINEMET [Concomitant]
     Route: 065
  7. ALBUTEROL [Concomitant]
     Route: 065
  8. CLOBETASOL PROPIONATE [Concomitant]
     Route: 065
  9. NITROGLYCERIN [Concomitant]
     Route: 065
  10. TYLENOL [Concomitant]
     Route: 065
  11. PREDNISONE [Concomitant]
     Route: 065
  12. OPCON A [Concomitant]
     Route: 065
  13. ESTRADIOL [Concomitant]
     Route: 065
  14. PROVERA [Concomitant]
     Route: 065
  15. LEVOTHROID [Concomitant]
     Route: 065

REACTIONS (3)
  - Colitis ischaemic [Recovered/Resolved]
  - Drug interaction [Recovered/Resolved]
  - Lower gastrointestinal haemorrhage [Recovered/Resolved]
